FAERS Safety Report 17441538 (Version 3)
Quarter: 2020Q3

REPORT INFORMATION
  Report Type: Spontaneous
  Country: CZ (occurrence: CZ)
  Receive Date: 20200220
  Receipt Date: 20200831
  Transmission Date: 20201102
  Serious: Yes (Death, Life-Threatening, Hospitalization, Other)
  Sender: FDA-Public Use
  Company Number: CZ-MYLANLABS-2020M1018796

PATIENT
  Sex: Male

DRUGS (19)
  1. TIAPRIDAL [Suspect]
     Active Substance: TIAPRIDE HYDROCHLORIDE
     Indication: DELIRIUM
     Dosage: 0?0?1
     Route: 048
  2. AMANTADINE. [Concomitant]
     Active Substance: AMANTADINE HYDROCHLORIDE
     Indication: PRODUCT USED FOR UNKNOWN INDICATION
     Dosage: UNK
  3. ESCITALOPRAM [Suspect]
     Active Substance: ESCITALOPRAM OXALATE
     Indication: DELIRIUM
     Dosage: 10 MILLIGRAM, QD ,1?0?0
     Route: 048
  4. TIAPRIDAL [Suspect]
     Active Substance: TIAPRIDE HYDROCHLORIDE
     Indication: ALCOHOLISM
     Dosage: 1 DF, QD
  5. TIAPRIDAL [Suspect]
     Active Substance: TIAPRIDE HYDROCHLORIDE
     Dosage: 4 DF, QID
  6. TIAPRIDAL [Suspect]
     Active Substance: TIAPRIDE HYDROCHLORIDE
     Dosage: 8 DAY
     Route: 048
  7. HALOPERIDOL. [Suspect]
     Active Substance: HALOPERIDOL
     Dosage: 20 UNK
  8. KVENTIAX [Suspect]
     Active Substance: QUETIAPINE FUMARATE
     Indication: PRODUCT USED FOR UNKNOWN INDICATION
     Dosage: 100 MILLIGRAM, BID
     Route: 048
  9. VASOCARDIN [Concomitant]
     Active Substance: METOPROLOL
     Dosage: 50 MILLIGRAM, BID(1?0?1)
     Route: 048
  10. HALOPERIDOL. [Suspect]
     Active Substance: HALOPERIDOL
     Dosage: 10 GTT DROPS, BID
     Route: 048
  11. NOVALGIN (METAMIZOLE SODIUM) [Concomitant]
     Active Substance: METAMIZOLE SODIUM
     Dosage: 3 DF, TID
  12. ESCITALOPRAM [Suspect]
     Active Substance: ESCITALOPRAM OXALATE
     Indication: ALCOHOLISM
     Dosage: 1 UNK
  13. HALOPERIDOL. [Suspect]
     Active Substance: HALOPERIDOL
     Dosage: 10 DF, TID
  14. NOVALGIN (METAMIZOLE SODIUM) [Concomitant]
     Active Substance: METAMIZOLE SODIUM
     Indication: DELIRIUM
     Dosage: 500 MILLIGRAM, TID,1?1?1
     Route: 048
  15. ESCITALOPRAM [Suspect]
     Active Substance: ESCITALOPRAM OXALATE
     Dosage: 1 UNK
  16. DANTROLENE. [Concomitant]
     Active Substance: DANTROLENE SODIUM
     Indication: PRODUCT USED FOR UNKNOWN INDICATION
     Dosage: 1 DOSAGE FORM,1 AMP. I. M.
     Route: 030
  17. TIAPRIDAL [Suspect]
     Active Substance: TIAPRIDE HYDROCHLORIDE
     Indication: AGGRESSION
     Dosage: 2?2?2?2
     Route: 048
  18. HALOPERIDOL. [Suspect]
     Active Substance: HALOPERIDOL
     Indication: AGGRESSION
     Dosage: 5 GTT DROPS, BID(5?0?5 GTTS AND 10?0?10 GTTS)
     Route: 048
  19. KVENTIAX [Suspect]
     Active Substance: QUETIAPINE FUMARATE
     Dosage: 2 DF, QD

REACTIONS (15)
  - Tremor [Fatal]
  - Psychomotor hyperactivity [Fatal]
  - Renal impairment [Fatal]
  - Muscle rigidity [Fatal]
  - Myoglobin blood increased [Fatal]
  - Hypertonia [Fatal]
  - Pyrexia [Fatal]
  - Altered state of consciousness [Fatal]
  - Neuroleptic malignant syndrome [Fatal]
  - Disease progression [Fatal]
  - Tachycardia [Fatal]
  - Blood creatinine increased [Fatal]
  - Dehydration [Fatal]
  - Hypertension [Fatal]
  - Apathy [Fatal]
